FAERS Safety Report 5656276-6 (Version None)
Quarter: 2008Q1

REPORT INFORMATION
  Report Type: 
  Country: None (occurrence: None)
  Receive Date: 20080309
  Receipt Date: 20070808
  Transmission Date: 20080703
  Serious: No
  Sender: FDA-Public Use
  Company Number: US-BAYER-200712024BCC

PATIENT
  Age: 61 Year
  Sex: Male
  Weight: 93 kg

DRUGS (4)
  1. ALEVE [Suspect]
     Indication: ARTHRALGIA
     Dosage: TOTAL DAILY DOSE: 440 MG  UNIT DOSE: 220 MG
     Route: 048
     Dates: start: 20060101
  2. ALEVE [Suspect]
  3. FINASTERIDE [Concomitant]
     Dates: start: 20020101
  4. SIMVASTATIN [Concomitant]
     Dates: start: 20000101

REACTIONS (3)
  - CARDIAC FLUTTER [None]
  - DISCOMFORT [None]
  - PALPITATIONS [None]
